FAERS Safety Report 4563758-7 (Version None)
Quarter: 2005Q1

REPORT INFORMATION
  Report Type: 
  Country: None (occurrence: None)
  Receive Date: 20050121
  Receipt Date: 20050103
  Transmission Date: 20050727
  Serious: Yes (Hospitalization)
  Sender: FDA-Public Use
  Company Number: US_0405103329

PATIENT
  Age: 50 Year
  Sex: Female
  Weight: 75 kg

DRUGS (26)
  1. ZYPREXA [Suspect]
     Dosage: 20 MG/1 AT BEDTIME
     Dates: start: 19981230, end: 20000101
  2. SINEQUAN [Concomitant]
  3. REMERON (MIRTAZAPINE ORIFARM) [Concomitant]
  4. PAXIL [Concomitant]
  5. ZOLOFT [Concomitant]
  6. MULTI-VITAMIN [Concomitant]
  7. NITROSTAT [Concomitant]
  8. VISTARIL [Concomitant]
  9. TIMOPTIC [Concomitant]
  10. ZOCOR (SIMVASTATIN RATIOPHARM) [Concomitant]
  11. CROMOLYN SODIUM [Concomitant]
  12. BUSPAR [Concomitant]
  13. CORAL CALCIUM [Concomitant]
  14. LISINOPRIL [Concomitant]
  15. ZETIA [Concomitant]
  16. MOTRIN [Concomitant]
  17. VICODIN [Concomitant]
  18. ASPIRIN [Concomitant]
  19. XALATAN [Concomitant]
  20. HYDROCHLOROTHIAZIDE [Concomitant]
  21. K-DUR 10 [Concomitant]
  22. ALPHAGAN [Concomitant]
  23. ALBUTEROL [Concomitant]
  24. NORVASC [Concomitant]
  25. AXID [Concomitant]
  26. MAGNESIUM OXIDE [Concomitant]

REACTIONS (21)
  - ABSCESS [None]
  - ALCOHOL USE [None]
  - ANGINA PECTORIS [None]
  - BACK PAIN [None]
  - CONFUSIONAL STATE [None]
  - CORONARY ARTERY ATHEROSCLEROSIS [None]
  - DENTAL CARIES [None]
  - DIABETES MELLITUS [None]
  - DIPLOPIA [None]
  - DIZZINESS [None]
  - FALL [None]
  - GLAUCOMA [None]
  - HYPERKERATOSIS [None]
  - HYPOTENSION [None]
  - IMPAIRED HEALING [None]
  - JOINT DISLOCATION [None]
  - RADIUS FRACTURE [None]
  - SYNCOPE [None]
  - TOOTH ABSCESS [None]
  - URINARY INCONTINENCE [None]
  - URINARY TRACT INFECTION [None]
